FAERS Safety Report 9473778 (Version 1)
Quarter: 2013Q3

REPORT INFORMATION
  Report Type: Spontaneous
  Country: US (occurrence: US)
  Receive Date: 20130823
  Receipt Date: 20130823
  Transmission Date: 20140515
  Serious: No
  Sender: FDA-Public Use
  Company Number: US-BRISTOL-MYERS SQUIBB COMPANY-16977902

PATIENT
  Age: 59 Year
  Sex: Male

DRUGS (1)
  1. SPRYCEL [Suspect]
     Indication: CHRONIC MYELOID LEUKAEMIA
     Dosage: 25SEP2010-FEB12,RESTARTED ON 13SEP12
     Route: 048
     Dates: start: 20100925

REACTIONS (6)
  - Tachycardia [Unknown]
  - Palpitations [Unknown]
  - Nephrolithiasis [Unknown]
  - Gastrooesophageal reflux disease [Recovering/Resolving]
  - Nausea [Recovering/Resolving]
  - Treatment noncompliance [Unknown]
